FAERS Safety Report 20777516 (Version 1)
Quarter: 2022Q2

REPORT INFORMATION
  Report Type: Spontaneous
  Country: RO (occurrence: RO)
  Receive Date: 20220503
  Receipt Date: 20220503
  Transmission Date: 20220720
  Serious: Yes (Other)
  Sender: FDA-Public Use
  Company Number: RO-UCBSA-2022025409

PATIENT
  Age: 5 Year
  Sex: Male
  Weight: 32 kg

DRUGS (4)
  1. BRIVARACETAM [Suspect]
     Active Substance: BRIVARACETAM
     Indication: Epilepsy
     Dosage: 1 MG/KG BODYWEIGHT/DAY;
     Route: 048
     Dates: start: 20220201
  2. BRIVARACETAM [Suspect]
     Active Substance: BRIVARACETAM
     Dosage: 1.7 MG/KG BODYWEIGHT/DAY
     Route: 048
  3. VALPROATE SODIUM [Concomitant]
     Active Substance: VALPROATE SODIUM
     Indication: Epilepsy
     Dosage: 500 MILLIGRAM, 2X/DAY (BID)
     Route: 048
     Dates: start: 2020
  4. CLOBAZAM [Concomitant]
     Active Substance: CLOBAZAM
     Indication: Epilepsy
     Dosage: 2.5 MILLIGRAM, 2X/DAY (BID)
     Route: 048

REACTIONS (1)
  - Myoclonic epilepsy [Recovered/Resolved]

NARRATIVE: CASE EVENT DATE: 20220325
